FAERS Safety Report 8030898-X (Version None)
Quarter: 2012Q1

REPORT INFORMATION
  Report Type: 
  Country: None (occurrence: None)
  Receive Date: 20120109
  Receipt Date: 20120102
  Transmission Date: 20120608
  Serious: Yes (Hospitalization, Other)
  Sender: FDA-Public Use
  Company Number: US-ROCHE-784973

PATIENT

DRUGS (2)
  1. PEGINTERFERON ALFA-2A [Suspect]
     Indication: HEPATITIS C
     Dosage: MIMIMUM DOSE: 90 MCG/WEEK, MAXIMUM DOSE: 180 MCG/WEEK
     Route: 058
  2. COPEGUS [Suspect]
     Indication: HEPATITIS C
     Dosage: MINIMUM DOSE: 200 MG BID AND MAXIMUM DOSE: 600 MG BID
     Route: 048

REACTIONS (9)
  - ANAEMIA [None]
  - WHITE BLOOD CELL COUNT DECREASED [None]
  - HEPATITIS CHRONIC ACTIVE [None]
  - SEPSIS [None]
  - PNEUMONIA [None]
  - TRANSPLANT REJECTION [None]
  - PLATELET COUNT DECREASED [None]
  - PANCYTOPENIA [None]
  - DEPRESSION [None]
